FAERS Safety Report 21699166 (Version 2)
Quarter: 2022Q4

REPORT INFORMATION
  Report Type: Spontaneous
  Country: IT (occurrence: IT)
  Receive Date: 20221208
  Receipt Date: 20221222
  Transmission Date: 20230112
  Serious: Yes (Hospitalization, Disabling, Other)
  Sender: FDA-Public Use
  Company Number: IT-CELLTRION HEALTHCARE HUNGARY KFT-2022IT014989

PATIENT
  Age: 58 Year
  Sex: Male

DRUGS (10)
  1. BICALUTAMIDE [Suspect]
     Active Substance: BICALUTAMIDE
     Indication: Extramammary Paget^s disease
     Dosage: 50 MILLIGRAM, DAILY
     Route: 048
     Dates: start: 201906
  2. CAPECITABINE [Suspect]
     Active Substance: CAPECITABINE
     Indication: Extramammary Paget^s disease
     Dosage: 1500 MILLIGRAM, QD, ~METRONOMIC
     Route: 065
     Dates: start: 201512
  3. TRASTUZUMAB [Suspect]
     Active Substance: TRASTUZUMAB
     Indication: Extramammary Paget^s disease
     Dosage: 8 MG/KG (LOADING DOSE)
     Route: 042
     Dates: start: 201601
  4. TRASTUZUMAB [Suspect]
     Active Substance: TRASTUZUMAB
     Dosage: 6 MILLIGRAM/KILOGRAM, Q3W. 6 MG/KG (MAINTENANCE
     Route: 042
  5. CARBOPLATIN [Suspect]
     Active Substance: CARBOPLATIN
     Indication: Extramammary Paget^s disease
     Dosage: UNK, Q3W, AREA UNDER THE CURVE(AUC)OF5EVERY3 W
     Route: 065
     Dates: start: 201601, end: 201605
  6. GEMCITABINE [Suspect]
     Active Substance: GEMCITABINE
     Indication: Extramammary Paget^s disease
     Dosage: 800 MILLIGRAM DAY 1, DAY 8 EVERY 3 WEEKS
     Route: 065
     Dates: start: 201908
  7. PACLITAXEL [Concomitant]
     Active Substance: PACLITAXEL
     Indication: Extramammary Paget^s disease
     Dosage: 150 MG/M2 EVERY 3 WEEKS
     Route: 065
     Dates: end: 201605
  8. VINORELBINE [Concomitant]
     Active Substance: VINORELBINE TARTRATE
     Indication: Extramammary Paget^s disease
     Dosage: 150 MILLIGRAM, QW, 50MG,(GIVEN ON MON, WED, FRI EV
     Route: 048
     Dates: start: 201808
  9. VINORELBINE [Concomitant]
     Active Substance: VINORELBINE TARTRATE
     Dosage: 90 MILLIGRAM, QW, 30MG(AS GIVEN ON MON, WED, FRI
     Route: 048
     Dates: end: 201905
  10. LEUPROLIDE ACETATE [Concomitant]
     Active Substance: LEUPROLIDE ACETATE
     Indication: Extramammary Paget^s disease
     Dosage: 11.25 MILLIGRAM, Q3MONTHS (EVERY 3 MONTHS)
     Route: 030
     Dates: start: 201906

REACTIONS (13)
  - Febrile neutropenia [Unknown]
  - Walking disability [Unknown]
  - Mobility decreased [Unknown]
  - Extramammary Paget^s disease [Unknown]
  - Disease progression [Unknown]
  - Anaemia [Unknown]
  - Asthenia [Unknown]
  - Fatigue [Unknown]
  - Depressed mood [Unknown]
  - Drug ineffective for unapproved indication [Unknown]
  - Drug intolerance [Unknown]
  - Off label use [Unknown]
  - Drug effective for unapproved indication [Unknown]

NARRATIVE: CASE EVENT DATE: 20151201
